FAERS Safety Report 14690190 (Version 20)
Quarter: 2023Q1

REPORT INFORMATION
  Report Type: Spontaneous
  Country: GB (occurrence: GB)
  Receive Date: 20180328
  Receipt Date: 20230111
  Transmission Date: 20230417
  Serious: Yes (Other)
  Sender: FDA-Public Use
  Company Number: GB-MYLANLABS-2017M1003714

PATIENT
  Age: 61 Year
  Sex: Female
  Weight: 60.1 kg

DRUGS (28)
  1. LORAZEPAM [Suspect]
     Active Substance: LORAZEPAM
     Indication: Product used for unknown indication
     Dosage: AS NEEDED
     Route: 048
  2. LORAZEPAM [Suspect]
     Active Substance: LORAZEPAM
     Dosage: 50 MG, BID (100 MILLIGRAM DAILY)
     Route: 048
  3. LORAZEPAM [Suspect]
     Active Substance: LORAZEPAM
     Dosage: 1 MILIGRAM (1 MG, PRN , THERAPY START DATE AND END DATE ASKED BUT UNKNOWN)
     Route: 048
  4. LORAZEPAM [Suspect]
     Active Substance: LORAZEPAM
     Route: 048
  5. AMISULPRIDE [Suspect]
     Active Substance: AMISULPRIDE
     Indication: Product used for unknown indication
     Dosage: 200 MG, BID
     Route: 048
  6. AMISULPRIDE [Suspect]
     Active Substance: AMISULPRIDE
     Dosage: 400 MILLIGRAM, QD (200 MG, BID)
     Route: 048
  7. AMISULPRIDE [Suspect]
     Active Substance: AMISULPRIDE
     Dosage: 200 MILLIGRAM, BID (400 MILLIGRAM DAILY)
     Route: 048
  8. AMISULPRIDE [Suspect]
     Active Substance: AMISULPRIDE
     Route: 048
  9. AMISULPRIDE [Suspect]
     Active Substance: AMISULPRIDE
     Route: 048
  10. AMISULPRIDE [Suspect]
     Active Substance: AMISULPRIDE
     Dosage: 200 MG, BID , UNIT DOSE : 800 MG
     Route: 065
  11. PIRENZEPINE [Suspect]
     Active Substance: PIRENZEPINE
     Indication: Product used for unknown indication
     Route: 048
  12. PIRENZEPINE [Suspect]
     Active Substance: PIRENZEPINE
     Route: 048
  13. PIRENZEPINE [Suspect]
     Active Substance: PIRENZEPINE
     Dosage: 100 MILLIGRAM DAILY; 50 MG, BID
     Route: 048
  14. PIRENZEPINE [Suspect]
     Active Substance: PIRENZEPINE
     Dosage: 100 MILLIGRAM DAILY; 50 MG, BID
     Route: 048
  15. PIRENZEPINE [Suspect]
     Active Substance: PIRENZEPINE
     Dosage: 600 MILLIGRAM DAILY; THERAPY START AND END DATE: ASKED BUT UNKNOWN
     Route: 048
  16. PIRENZEPINE [Suspect]
     Active Substance: PIRENZEPINE
     Dosage: 600 MILLIGRAM, QD (600 MILLIGRAM DAILY; 600 MG, QD )
     Route: 048
  17. PIRENZEPINE [Suspect]
     Active Substance: PIRENZEPINE
     Dosage: 100 MG, BID
     Route: 048
  18. CITALOPRAM [Suspect]
     Active Substance: CITALOPRAM HYDROBROMIDE
     Indication: Product used for unknown indication
     Dosage: 30 MG,QD
     Route: 048
  19. CITALOPRAM [Suspect]
     Active Substance: CITALOPRAM HYDROBROMIDE
     Dosage: 30 MG,QD
     Route: 048
  20. VALPROATE SODIUM [Suspect]
     Active Substance: VALPROATE SODIUM
     Indication: Product used for unknown indication
     Route: 048
  21. VALPROATE SODIUM [Suspect]
     Active Substance: VALPROATE SODIUM
     Dosage: 600 MG, BID
     Route: 048
  22. VALPROATE SODIUM [Suspect]
     Active Substance: VALPROATE SODIUM
     Dosage: 600 MG, QD
     Route: 048
  23. VALPROATE SODIUM [Suspect]
     Active Substance: VALPROATE SODIUM
     Dosage: 1200 MILLIGRAM DAILY; 600 MG, BID , THERAPY START DATE AND END DATE : ASKU
     Route: 048
  24. CLOZARIL [Suspect]
     Active Substance: CLOZAPINE
     Indication: Schizophrenia
     Dosage: 400 MILLIGRAM DAILY; 400 MG, QD, PM
     Route: 048
     Dates: start: 20030116
  25. CLOZARIL [Suspect]
     Active Substance: CLOZAPINE
     Route: 048
  26. CLOZARIL [Suspect]
     Active Substance: CLOZAPINE
     Dosage: 200 MILLIGRAM, BID
     Route: 048
  27. CLONAZEPAM [Suspect]
     Active Substance: CLONAZEPAM
     Indication: Schizophrenia
     Dosage: 200 MG, BID
     Route: 048
  28. CLONAZEPAM [Suspect]
     Active Substance: CLONAZEPAM
     Dosage: 400 MG, QD
     Route: 048
     Dates: start: 20030116

REACTIONS (3)
  - Differential white blood cell count abnormal [Recovering/Resolving]
  - Neutrophil count abnormal [Recovering/Resolving]
  - Off label use [Unknown]

NARRATIVE: CASE EVENT DATE: 20170118
